FAERS Safety Report 4550512-5 (Version None)
Quarter: 2004Q4

REPORT INFORMATION
  Report Type: 
  Country: None (occurrence: None)
  Receive Date: 20041217
  Receipt Date: 20040923
  Transmission Date: 20050328
  Serious: No
  Sender: FDA-Public Use
  Company Number: 2004-BP-08618BP

PATIENT
  Age: 85 Year
  Sex: Female

DRUGS (4)
  1. SPIRIVA [Suspect]
     Indication: ASTHMA
     Dosage: 18 MCG (18 MCG), IH
     Route: 055
     Dates: start: 20040101, end: 20040922
  2. COUMADIN [Concomitant]
  3. NEXIUM [Concomitant]
  4. ADVAIR (SERETIDE MITE) [Concomitant]

REACTIONS (1)
  - URTICARIA [None]
